FAERS Safety Report 10549384 (Version 2)
Quarter: 2014Q4

REPORT INFORMATION
  Report Type: Report from Study
  Country: US (occurrence: US)
  Receive Date: 20141028
  Receipt Date: 20141028
  Transmission Date: 20150529
  Serious: Yes (Other)
  Sender: FDA-Public Use
  Company Number: US-CELGENE-163-21880-13053604

PATIENT
  Age: 56 Year
  Sex: Male
  Weight: 62.65 kg

DRUGS (44)
  1. OYSCO 500 + D 500 [Concomitant]
     Indication: PRODUCT USED FOR UNKNOWN INDICATION
     Dosage: 400 MILLIGRAM
     Route: 048
  2. HYTRIN [Concomitant]
     Active Substance: TERAZOSIN HYDROCHLORIDE
     Indication: PRODUCT USED FOR UNKNOWN INDICATION
     Dosage: 5 MILLIGRAM
     Route: 048
  3. KEFLEX [Concomitant]
     Active Substance: CEPHALEXIN
     Indication: FOLLICULITIS
     Route: 065
  4. IMMUNOPRESSIVE THERAPY [Concomitant]
     Indication: HEPATITIS B
     Dosage: 1.3 MILLIGRAM/SQ. METER
     Route: 065
     Dates: start: 20110920
  5. VELCADE [Concomitant]
     Active Substance: BORTEZOMIB
     Indication: PRODUCT USED FOR UNKNOWN INDICATION
     Route: 065
  6. DEXAMETHASONE. [Concomitant]
     Active Substance: DEXAMETHASONE
     Indication: PRODUCT USED FOR UNKNOWN INDICATION
     Route: 048
     Dates: start: 20110830
  7. VANCO [Concomitant]
     Active Substance: VANCOMYCIN
     Indication: FEBRILE NEUTROPENIA
     Dosage: 100 MILLIGRAM
     Route: 065
     Dates: start: 2012
  8. COZAAR [Concomitant]
     Active Substance: LOSARTAN POTASSIUM
     Indication: PRODUCT USED FOR UNKNOWN INDICATION
     Dosage: 50 MILLIGRAM
     Route: 048
  9. HAEMOPHILUS INFLUENZA VACCINE [Concomitant]
     Indication: PRODUCT USED FOR UNKNOWN INDICATION
     Route: 065
     Dates: start: 20120730, end: 20120730
  10. ACYCLOVIR. [Concomitant]
     Active Substance: ACYCLOVIR
     Indication: PRODUCT USED FOR UNKNOWN INDICATION
     Route: 065
     Dates: end: 20120315
  11. CALCIUM CARBONATE/ VITAMIN D [Concomitant]
     Indication: PRODUCT USED FOR UNKNOWN INDICATION
     Dosage: 1.1 PERCENT
     Route: 048
  12. TRIAMTERENE AND HYDROCHLOROTHIAZIDE [Concomitant]
     Active Substance: HYDROCHLOROTHIAZIDE\TRIAMTERENE
     Indication: PRODUCT USED FOR UNKNOWN INDICATION
     Dosage: 37.5/25
     Route: 065
  13. SODIUM FLOURIDE [Concomitant]
     Active Substance: SODIUM FLUORIDE
     Indication: PRODUCT USED FOR UNKNOWN INDICATION
     Route: 048
  14. PRILOSEC [Concomitant]
     Active Substance: OMEPRAZOLE MAGNESIUM
     Indication: PRODUCT USED FOR UNKNOWN INDICATION
     Dosage: 40 MILLIGRAM
     Route: 048
  15. OXYCODONE [Concomitant]
     Active Substance: OXYCODONE
     Route: 065
  16. BACTRIM DS [Concomitant]
     Active Substance: SULFAMETHOXAZOLE\TRIMETHOPRIM
     Indication: PRODUCT USED FOR UNKNOWN INDICATION
     Dosage: 800-160MG
     Route: 048
  17. POLYETHYLENE GLYCOL [Concomitant]
     Active Substance: POLYETHYLENE GLYCOLS
     Indication: PRODUCT USED FOR UNKNOWN INDICATION
     Dosage: 1 TABLESPOON
     Route: 048
  18. MELPHALAN [Concomitant]
     Active Substance: MELPHALAN
     Indication: PRODUCT USED FOR UNKNOWN INDICATION
     Route: 065
     Dates: start: 20120126
  19. DEXAMETHASONE. [Concomitant]
     Active Substance: DEXAMETHASONE
     Route: 048
     Dates: start: 20130320
  20. CEFTAZ [Concomitant]
     Indication: FEBRILE NEUTROPENIA
     Dosage: 40 MILLIGRAM
     Route: 065
     Dates: start: 2012
  21. K PHOS DI AND MONO-SOD PHOS MONO [Concomitant]
     Indication: PRODUCT USED FOR UNKNOWN INDICATION
     Route: 048
  22. TESSALON [Concomitant]
     Active Substance: BENZONATATE
     Indication: PRODUCT USED FOR UNKNOWN INDICATION
     Route: 048
  23. TETANUS TOXOID. REDUCED DIPTHEROID/ PERTUSSIS [Concomitant]
     Indication: PRODUCT USED FOR UNKNOWN INDICATION
     Route: 065
     Dates: start: 20120730, end: 20120730
  24. REVLIMID [Suspect]
     Active Substance: LENALIDOMIDE
     Indication: PLASMA CELL MYELOMA
     Route: 048
     Dates: start: 20110830
  25. FLUCONAZOLE. [Concomitant]
     Active Substance: FLUCONAZOLE
     Indication: PRODUCT USED FOR UNKNOWN INDICATION
     Dosage: 30 MILLIGRAM
     Route: 065
  26. MS CONTIN [Concomitant]
     Active Substance: MORPHINE SULFATE
     Indication: PAIN
     Route: 065
  27. POTASSIUM CHLORIDE. [Concomitant]
     Active Substance: POTASSIUM CHLORIDE
     Indication: PRODUCT USED FOR UNKNOWN INDICATION
     Route: 048
  28. PNEUMOCOCCAL POLYSACCHARIDE 23 VALENT VACCINE [Concomitant]
     Indication: PRODUCT USED FOR UNKNOWN INDICATION
     Route: 065
     Dates: start: 20120730, end: 20120730
  29. ZOMETA [Concomitant]
     Active Substance: ZOLEDRONIC ACID
     Indication: PRODUCT USED FOR UNKNOWN INDICATION
     Dosage: 4 MILLIGRAM
     Route: 041
  30. MAG-OX [Concomitant]
     Indication: PRODUCT USED FOR UNKNOWN INDICATION
     Dosage: 800 MILLIGRAM
     Route: 048
  31. K-TAB [Concomitant]
     Active Substance: POTASSIUM CHLORIDE
     Indication: PRODUCT USED FOR UNKNOWN INDICATION
     Dosage: 40 MILLIEQUIVALENTS
     Route: 048
  32. OMEPRAZOLE. [Concomitant]
     Active Substance: OMEPRAZOLE
     Indication: PRODUCT USED FOR UNKNOWN INDICATION
     Dosage: 300 MILLIGRAM
     Route: 065
  33. POLIO VACCINE [Concomitant]
     Active Substance: POLIOMYELITIS VACCINE
     Indication: PRODUCT USED FOR UNKNOWN INDICATION
     Route: 065
     Dates: start: 20120829, end: 20120829
  34. REVLIMID [Suspect]
     Active Substance: LENALIDOMIDE
     Dosage: 5-10MG
     Route: 048
     Dates: start: 20120315, end: 20130320
  35. OXYCODONE [Concomitant]
     Active Substance: OXYCODONE
     Indication: PAIN
     Dosage: 5-10MG
     Route: 048
  36. TOPROL XL [Concomitant]
     Active Substance: METOPROLOL SUCCINATE
     Indication: PRODUCT USED FOR UNKNOWN INDICATION
     Route: 048
  37. TOPROL XL [Concomitant]
     Active Substance: METOPROLOL SUCCINATE
     Dosage: 500 MILLIGRAM
     Route: 065
  38. ASPIRIN. [Concomitant]
     Active Substance: ASPIRIN
     Indication: PRODUCT USED FOR UNKNOWN INDICATION
     Dosage: 325 MILLIGRAM
     Route: 048
     Dates: start: 20120315
  39. AUGMENTIN [Concomitant]
     Active Substance: AMOXICILLIN\CLAVULANATE POTASSIUM
     Indication: FOLLICULITIS
     Dosage: 2 TABLET
     Route: 065
     Dates: start: 2012
  40. LORAZEPAM. [Concomitant]
     Active Substance: LORAZEPAM
     Indication: NAUSEA
     Dosage: 0.5
     Route: 065
  41. LORAZEPAM. [Concomitant]
     Active Substance: LORAZEPAM
     Indication: VOMITING
     Route: 065
  42. MIRALAX [Concomitant]
     Active Substance: POLYETHYLENE GLYCOL 3350
     Indication: PRODUCT USED FOR UNKNOWN INDICATION
     Dosage: 1 TBSP/17 GRAMS
     Route: 048
  43. POLIO VACCINE [Concomitant]
     Active Substance: POLIOMYELITIS VACCINE
     Route: 065
     Dates: start: 20130114, end: 20130114
  44. TETANUS TOXOID. REDUCED DIPTHEROID/ PERTUSSIS [Concomitant]
     Route: 065
     Dates: start: 20130114, end: 20130114

REACTIONS (4)
  - Herpes zoster [Unknown]
  - Prostate cancer [Not Recovered/Not Resolved]
  - Bone marrow failure [Unknown]
  - Hepatitis B [Unknown]

NARRATIVE: CASE EVENT DATE: 2012
